FAERS Safety Report 6077789-1 (Version None)
Quarter: 2009Q1

REPORT INFORMATION
  Report Type: 
  Country: None (occurrence: None)
  Receive Date: 20090213
  Receipt Date: 20090203
  Transmission Date: 20090719
  Serious: Yes (Hospitalization, Other)
  Sender: FDA-Public Use
  Company Number: US-PFIZER INC-2009167386

PATIENT

DRUGS (4)
  1. CYTOTEC [Suspect]
     Indication: GASTRIC DISORDER
     Dosage: UNK
     Route: 048
     Dates: start: 19940101
  2. GAS-X [Suspect]
     Indication: GASTRIC DISORDER
     Dosage: 40-45 DF
     Route: 048
  3. DULCOLAX [Suspect]
     Indication: GASTRIC DISORDER
     Dosage: UNK
     Route: 048
     Dates: start: 19940101
  4. PROPULSID [Concomitant]

REACTIONS (3)
  - CONDITION AGGRAVATED [None]
  - GASTRIC DISORDER [None]
  - INTESTINAL FUNCTIONAL DISORDER [None]
